FAERS Safety Report 10009487 (Version 1)
Quarter: 2014Q1

REPORT INFORMATION
  Report Type: Spontaneous
  Country: US (occurrence: US)
  Receive Date: 20140312
  Receipt Date: 20140312
  Transmission Date: 20141002
  Serious: No
  Sender: FDA-Public Use
  Company Number: US-INCYTE CORPORATION-2012IN001682

PATIENT
  Sex: Female

DRUGS (2)
  1. JAKAFI [Suspect]
     Dosage: 15 MG, BID
     Route: 048
  2. FLU [Suspect]
     Dosage: UNK
     Dates: start: 20120830

REACTIONS (4)
  - Cardiac flutter [Unknown]
  - Upper respiratory tract congestion [Unknown]
  - Pain [Unknown]
  - Headache [Unknown]
